FAERS Safety Report 23437588 (Version 1)
Quarter: 2024Q1

REPORT INFORMATION
  Report Type: Spontaneous
  Country: CN (occurrence: CN)
  Receive Date: 20240124
  Receipt Date: 20240124
  Transmission Date: 20240410
  Serious: Yes (Other)
  Sender: FDA-Public Use
  Company Number: CN-ASTELLAS-2024US002091

PATIENT
  Age: 68 Year
  Sex: Male
  Weight: 75 kg

DRUGS (1)
  1. HARNAL [Suspect]
     Active Substance: TAMSULOSIN HYDROCHLORIDE
     Indication: Benign prostatic hyperplasia
     Dosage: 1 DF, QD
     Route: 048
     Dates: start: 20240105, end: 20240106

REACTIONS (2)
  - Pruritus genital [Recovering/Resolving]
  - Genital herpes [Recovering/Resolving]

NARRATIVE: CASE EVENT DATE: 20240106
